FAERS Safety Report 20570119 (Version 3)
Quarter: 2023Q2

REPORT INFORMATION
  Report Type: Spontaneous
  Country: US (occurrence: US)
  Receive Date: 20220309
  Receipt Date: 20230414
  Transmission Date: 20230722
  Serious: Yes (Death, Disabling, Other)
  Sender: FDA-Public Use
  Company Number: US-ORGANON-O2203USA000796

PATIENT
  Sex: Female

DRUGS (1)
  1. SINGULAIR [Suspect]
     Active Substance: MONTELUKAST SODIUM
     Dosage: UNK
     Route: 048
     Dates: start: 200204, end: 2005

REACTIONS (17)
  - Neuropsychiatric symptoms [Fatal]
  - Aggression [Fatal]
  - Depression [Fatal]
  - Hallucination [Unknown]
  - Suicidal ideation [Unknown]
  - Confusional state [Unknown]
  - Anger [Unknown]
  - Anxiety [Unknown]
  - Tic [Unknown]
  - Nightmare [Unknown]
  - Abdominal pain upper [Unknown]
  - Memory impairment [Unknown]
  - Abnormal dreams [Unknown]
  - Insomnia [Unknown]
  - Restlessness [Unknown]
  - Headache [Unknown]
  - Somnambulism [Unknown]

NARRATIVE: CASE EVENT DATE: 20020410
